FAERS Safety Report 4939358-3 (Version None)
Quarter: 2006Q1

REPORT INFORMATION
  Report Type: 
  Country: None (occurrence: None)
  Receive Date: 20060310
  Receipt Date: 20060222
  Transmission Date: 20060701
  Serious: Yes (Death, Other)
  Sender: FDA-Public Use
  Company Number: PHBS2006JP02961

PATIENT
  Age: 30 Year
  Sex: Male

DRUGS (7)
  1. NEUPOGEN [Concomitant]
  2. FLUDARABINE PHOSPHATE [Concomitant]
  3. CYCLOSPORINE [Suspect]
     Indication: STEM CELL TRANSPLANT
     Route: 065
  4. CYTARABINE [Concomitant]
  5. CYCLOPHOSPHAMIDE [Concomitant]
  6. IRRADIATION [Concomitant]
  7. METHOTREXATE [Concomitant]

REACTIONS (11)
  - ARTHRITIS [None]
  - BLOOD BETA-D-GLUCAN INCREASED [None]
  - BLOOD STEM CELL TRANSPLANT FAILURE [None]
  - LIVER ABSCESS [None]
  - ORAL CANDIDIASIS [None]
  - PANCYTOPENIA [None]
  - PYREXIA [None]
  - SPLENIC ABSCESS [None]
  - STEM CELL TRANSPLANT [None]
  - SYSTEMIC MYCOSIS [None]
  - TRICHOSPORON INFECTION [None]
